FAERS Safety Report 19269326 (Version 1)
Quarter: 2021Q2

REPORT INFORMATION
  Report Type: Spontaneous
  Country: IN (occurrence: IN)
  Receive Date: 20210517
  Receipt Date: 20210517
  Transmission Date: 20210717
  Serious: Yes (Other)
  Sender: FDA-Public Use
  Company Number: IN-INSUD PHARMA-2105IN00550

PATIENT

DRUGS (2)
  1. TESTOSTERONE. [Suspect]
     Active Substance: TESTOSTERONE
     Indication: MUSCLE BUILDING THERAPY
     Dosage: INTRAMUSCULAR INJECTION FORTNIGHTLY
     Route: 030
  2. STANOZOLOL [Suspect]
     Active Substance: STANOZOLOL
     Indication: MUSCLE BUILDING THERAPY
     Dosage: ONCE DAILY
     Route: 048

REACTIONS (6)
  - Abdominal pain upper [Recovered/Resolved]
  - Drug abuse [Unknown]
  - Hepatic adenoma [Recovered/Resolved]
  - Drug-induced liver injury [Recovered/Resolved]
  - Nausea [Recovered/Resolved]
  - Hepatocellular carcinoma [Recovered/Resolved]
